FAERS Safety Report 9671652 (Version 1)
Quarter: 2013Q4

REPORT INFORMATION
  Report Type: Spontaneous
  Country: DE (occurrence: None)
  Receive Date: 20131104
  Receipt Date: 20131104
  Transmission Date: 20140711
  Serious: Yes (Other)
  Sender: FDA-Public Use
  Company Number: SYM-2013-12207

PATIENT
  Age: 50 Year
  Sex: Male

DRUGS (2)
  1. ELONTRIL [Suspect]
     Indication: PROPHYLAXIS
     Route: 048
  2. ATOSIL (PROMETHAZINE HYDROCHLORIDE) (PRMOETHAZINE HYDRCHLORIDE) [Concomitant]

REACTIONS (1)
  - VIIth nerve paralysis [None]
